FAERS Safety Report 7429524-X (Version None)
Quarter: 2011Q2

REPORT INFORMATION
  Report Type: 
  Country: None (occurrence: None)
  Receive Date: 20110421
  Receipt Date: 20110413
  Transmission Date: 20111010
  Serious: Yes (Other)
  Sender: FDA-Public Use
  Company Number: A0838066A

PATIENT
  Age: 72 Year
  Sex: Female

DRUGS (1)
  1. ADVAIR HFA [Suspect]
     Dosage: 1PUFF TWICE PER DAY
     Route: 055
     Dates: start: 20020101, end: 20091001

REACTIONS (15)
  - LARYNGEAL OEDEMA [None]
  - MUCOSAL INFLAMMATION [None]
  - LARYNGEAL ERYTHEMA [None]
  - DISCOMFORT [None]
  - PHARYNGEAL INFLAMMATION [None]
  - VOCAL CORD DISORDER [None]
  - CANDIDIASIS [None]
  - SPEECH DISORDER [None]
  - PHARYNGEAL OEDEMA [None]
  - LARYNGEAL INFLAMMATION [None]
  - PHARYNGITIS [None]
  - ORAL FUNGAL INFECTION [None]
  - LARYNGITIS [None]
  - DYSPHONIA [None]
  - THROAT IRRITATION [None]
